FAERS Safety Report 9009133 (Version 1)
Quarter: 2013Q1

REPORT INFORMATION
  Report Type: Spontaneous
  Country: GB (occurrence: GB)
  Receive Date: 20130111
  Receipt Date: 20130111
  Transmission Date: 20140127
  Serious: Yes (Other)
  Sender: FDA-Public Use
  Company Number: GB-BAYER-2013-003235

PATIENT
  Age: 34 Year
  Sex: Female
  Weight: 68 kg

DRUGS (5)
  1. CIPROXIN 500 MG FILM-COATED TABLETS [Suspect]
     Indication: URINARY TRACT INFECTION
     Dosage: 500 MG, BID
     Route: 048
     Dates: start: 20121227
  2. LAMOTRIGINE [Concomitant]
  3. LITHIUM CARBONATE [Concomitant]
  4. SERETIDE [Concomitant]
  5. ZOPICLONE [Concomitant]

REACTIONS (3)
  - Constipation [Not Recovered/Not Resolved]
  - Flatulence [Not Recovered/Not Resolved]
  - Back pain [Not Recovered/Not Resolved]
